FAERS Safety Report 4652708-0 (Version None)
Quarter: 2005Q2

REPORT INFORMATION
  Report Type: 
  Country: None (occurrence: None)
  Receive Date: 20050502
  Receipt Date: 20050421
  Transmission Date: 20051028
  Serious: Yes (Other)
  Sender: FDA-Public Use
  Company Number: GBWYE612125APR05

PATIENT
  Sex: Female

DRUGS (1)
  1. TACROLIMUS, CONTROL FOR SIROLIMUS (TACROLIMUS, CONTROL FOR SIROLIMUS, [Suspect]

REACTIONS (2)
  - BIOPSY CERVIX ABNORMAL [None]
  - PRECANCEROUS CELLS PRESENT [None]
